FAERS Safety Report 20676422 (Version 1)
Quarter: 2022Q2

REPORT INFORMATION
  Report Type: Spontaneous
  Country: CA (occurrence: CA)
  Receive Date: 20220405
  Receipt Date: 20220405
  Transmission Date: 20220720
  Serious: Yes (Other)
  Sender: FDA-Public Use
  Company Number: CA-JNJFOC-20220363343

PATIENT
  Age: 51 Year
  Sex: Female
  Weight: 65 kg

DRUGS (9)
  1. REMICADE [Suspect]
     Active Substance: INFLIXIMAB
     Indication: Crohn^s disease
     Route: 042
  2. CALCIUM\CHOLECALCIFEROL [Concomitant]
     Active Substance: CALCIUM\CHOLECALCIFEROL
  3. CELECOXIB [Concomitant]
     Active Substance: CELECOXIB
  4. JARDIANCE [Concomitant]
     Active Substance: EMPAGLIFLOZIN
  5. LOSARTAN [Concomitant]
     Active Substance: LOSARTAN
  6. MERCAPTOPURINE [Concomitant]
     Active Substance: MERCAPTOPURINE
  7. METFORMIN [Concomitant]
     Active Substance: METFORMIN HYDROCHLORIDE
  8. PURINETHOL [Concomitant]
     Active Substance: MERCAPTOPURINE
  9. ROSUVASTATIN [Concomitant]
     Active Substance: ROSUVASTATIN

REACTIONS (8)
  - Anal fissure [Unknown]
  - Aphthous ulcer [Unknown]
  - Mouth ulceration [Unknown]
  - Erythema nodosum [Unknown]
  - Condition aggravated [Unknown]
  - Arthralgia [Unknown]
  - Off label use [Unknown]
  - Intentional product use issue [Unknown]
